FAERS Safety Report 7521729-2 (Version None)
Quarter: 2011Q2

REPORT INFORMATION
  Report Type: 
  Country: None (occurrence: None)
  Receive Date: 20110603
  Receipt Date: 20110527
  Transmission Date: 20111010
  Serious: No
  Sender: FDA-Public Use
  Company Number: US-JNJFOC-20110512746

PATIENT
  Sex: Male
  Weight: 86.18 kg

DRUGS (5)
  1. FENTANYL-100 [Concomitant]
     Indication: INTERVERTEBRAL DISC DEGENERATION
     Route: 062
     Dates: start: 20100101
  2. ASPIRIN [Concomitant]
     Indication: PLATELET TRANSFUSION
     Dosage: AS NEEDED
     Route: 048
     Dates: start: 19910101
  3. OXYCODONE HCL [Concomitant]
     Indication: ANALGESIC THERAPY
     Dosage: AS NEEDED
     Route: 048
     Dates: start: 20020101
  4. DURAGESIC-100 [Suspect]
     Indication: INTERVERTEBRAL DISC DEGENERATION
     Route: 062
     Dates: start: 20020101, end: 20110101
  5. MELOXICAM [Concomitant]
     Indication: INFLAMMATION
     Dosage: AS NEEDED
     Route: 048
     Dates: start: 20020101

REACTIONS (2)
  - DRUG DOSE OMISSION [None]
  - ANXIETY [None]
